FAERS Safety Report 6021109-5 (Version None)
Quarter: 2008Q4

REPORT INFORMATION
  Report Type: 
  Country: None (occurrence: None)
  Receive Date: 20081229
  Receipt Date: 20081216
  Transmission Date: 20090506
  Serious: Yes (Other)
  Sender: FDA-Public Use
  Company Number: CH-PFIZER INC-2008154028

PATIENT

DRUGS (3)
  1. XANAX [Suspect]
     Route: 048
     Dates: start: 20080425, end: 20080502
  2. TEMESTA [Suspect]
     Route: 048
     Dates: start: 20080408, end: 20080424
  3. CLORAZEPATE DIPOTASSIUM [Suspect]
     Route: 048
     Dates: start: 20080331, end: 20080331

REACTIONS (1)
  - ABORTION SPONTANEOUS [None]
